FAERS Safety Report 8512120-0 (Version None)
Quarter: 2012Q3

REPORT INFORMATION
  Report Type: 
  Country: None (occurrence: None)
  Receive Date: 20120716
  Receipt Date: 20120702
  Transmission Date: 20120928
  Serious: Yes (Hospitalization, Other)
  Sender: FDA-Public Use
  Company Number: ZA-ASTRAZENECA-2012SE39392

PATIENT
  Age: 6 Week
  Sex: Female
  Weight: 2.2 kg

DRUGS (4)
  1. SYNAGIS [Suspect]
     Indication: ANTIVIRAL PROPHYLAXIS
     Route: 030
     Dates: start: 20120504, end: 20120504
  2. SYNAGIS [Suspect]
     Route: 030
     Dates: start: 20120604, end: 20120604
  3. SYNAGIS [Suspect]
     Route: 030
     Dates: start: 20120604, end: 20120604
  4. SYNAGIS [Suspect]
     Indication: PREMATURE BABY
     Route: 030
     Dates: start: 20120504, end: 20120504

REACTIONS (2)
  - RESPIRATORY SYNCYTIAL VIRUS INFECTION [None]
  - PNEUMONITIS [None]
